FAERS Safety Report 4318456-1 (Version None)
Quarter: 2004Q1

REPORT INFORMATION
  Report Type: 
  Country: None (occurrence: None)
  Receive Date: 20040315
  Receipt Date: 20040303
  Transmission Date: 20041129
  Serious: Yes (Hospitalization)
  Sender: FDA-Public Use
  Company Number: 2004199814JP

PATIENT
  Age: 50 Year
  Sex: Male
  Weight: 60 kg

DRUGS (12)
  1. SOLU-CORTEF [Suspect]
     Indication: BRONCHITIS
     Dosage: SEE IMAGE
     Dates: start: 20040204, end: 20040204
  2. SOLU-CORTEF [Suspect]
     Indication: BRONCHITIS
     Dosage: SEE IMAGE
     Dates: start: 20040212, end: 20040212
  3. MINOPEN (MINOCYCLINE HYDROCHLORIDE) [Suspect]
     Indication: BRONCHITIS
     Dosage: 100 MG, SINGLE, IV
     Route: 042
     Dates: start: 20040212, end: 20040212
  4. GLUNON (GLUCOSE) [Suspect]
     Indication: BRONCHITIS
     Dosage: 100 MG, SINGLE, IV
     Route: 042
     Dates: start: 20040212, end: 20040212
  5. C-PARA (VITAMINS NOS) [Suspect]
     Indication: BRONCHITIS
     Dosage: 2 ML, SINGLE, IV
     Route: 042
     Dates: start: 20040212, end: 20040212
  6. LEVOFLOXACIN [Concomitant]
  7. TRANSAMIN [Concomitant]
  8. BIOFERMIN (BACILLUS SUBTILIS, STREPTOCOCCUS FAECALIS) [Concomitant]
  9. CEREKINON (TRIMEBUTINE MALEATE [Concomitant]
  10. CELESTAMINE (BETAMETHASONE) [Concomitant]
  11. PRIMPERAN INJ [Concomitant]
  12. SODIUM CHLORIDE 0.9% [Concomitant]

REACTIONS (5)
  - ANAPHYLACTIC SHOCK [None]
  - CYANOSIS [None]
  - FEELING ABNORMAL [None]
  - HEART RATE DECREASED [None]
  - HYPOAESTHESIA [None]
